FAERS Safety Report 5036140-6 (Version None)
Quarter: 2006Q2

REPORT INFORMATION
  Report Type: 
  Country: None (occurrence: None)
  Receive Date: 20060531
  Receipt Date: 20060210
  Transmission Date: 20061013
  Serious: No
  Sender: FDA-Public Use
  Company Number: PHEH2006US02052

PATIENT
  Age: 73 Year
  Sex: Male

DRUGS (10)
  1. EXJADE [Suspect]
     Dosage: 250 MG QD ORAL
     Route: 048
     Dates: start: 20060203
  2. ZOFRAN [Concomitant]
  3. . [Concomitant]
  4. PROTONIX [Concomitant]
  5. ZETIA [Concomitant]
  6. . [Concomitant]
  7. WARFARIN SODIUM [Concomitant]
  8. ZYRTEC [Concomitant]
  9. ATENOLOL [Concomitant]
  10. AMIODARONE (AMIODARONE ) [Concomitant]

REACTIONS (4)
  - EYE SWELLING [None]
  - OCULAR HYPERAEMIA [None]
  - ROSACEA [None]
  - SWELLING FACE [None]
